FAERS Safety Report 4849299-8 (Version None)
Quarter: 2005Q4

REPORT INFORMATION
  Report Type: 
  Country: None (occurrence: None)
  Receive Date: 20051209
  Receipt Date: 20051129
  Transmission Date: 20060501
  Serious: Yes (Other)
  Sender: FDA-Public Use
  Company Number: US-JNJFOC-20051106644

PATIENT
  Sex: Female
  Weight: 49.9 kg

DRUGS (3)
  1. DITROPAN XL [Suspect]
     Route: 048
  2. PERCOCET [Suspect]
     Route: 048
     Dates: start: 20051101, end: 20051101
  3. PERCOCET [Suspect]
     Indication: PAIN
     Route: 048
     Dates: start: 20051101, end: 20051101

REACTIONS (4)
  - CONSTIPATION [None]
  - FALL [None]
  - THERAPEUTIC RESPONSE DECREASED [None]
  - UPPER LIMB FRACTURE [None]
